FAERS Safety Report 6663507-2 (Version None)
Quarter: 2010Q2

REPORT INFORMATION
  Report Type: 
  Country: None (occurrence: None)
  Receive Date: 20100401
  Receipt Date: 20100323
  Transmission Date: 20101027
  Serious: Yes (Other)
  Sender: FDA-Public Use
  Company Number: NO-PFIZER INC-2010025670

PATIENT
  Age: 77 Year
  Sex: Male

DRUGS (4)
  1. SUTENT [Suspect]
     Indication: METASTATIC RENAL CELL CARCINOMA
     Dosage: 50 MG, DAILY, 4 WEEKS ON / 2 WEEKS OFF
     Route: 048
     Dates: start: 20090101
  2. GLUCOPHAGE [Concomitant]
     Indication: DIABETES MELLITUS
     Dosage: UNK
  3. CENTYL [Concomitant]
  4. ZANIDIP [Concomitant]
     Indication: HYPERTENSION

REACTIONS (1)
  - HYPOGLYCAEMIA [None]
